FAERS Safety Report 4303684-1 (Version None)
Quarter: 2004Q1

REPORT INFORMATION
  Report Type: 
  Country: None (occurrence: None)
  Receive Date: 20040223
  Receipt Date: 20040210
  Transmission Date: 20041129
  Serious: Yes (Hospitalization)
  Sender: FDA-Public Use
  Company Number: 2004010105

PATIENT
  Age: 49 Year
  Sex: Male
  Weight: 60 kg

DRUGS (21)
  1. VFEND [Suspect]
     Indication: BRONCHOPULMONARY ASPERGILLOSIS
     Dosage: 800 MG (BID), ORAL
     Route: 048
     Dates: start: 20030320, end: 20040127
  2. CYCLOSPORINE [Concomitant]
  3. PREDNISOLONE [Concomitant]
  4. MYCOPHENOLATE  MOFETIL (MYCOPHENOLATE MOFETIL) [Concomitant]
  5. ACYCLOVIR [Concomitant]
  6. PHENOXYMETHYLPLENICILLIN POTASSIUM (PHENOXYMETHYLPLENICILLIN POTASSIUM [Concomitant]
  7. CIPROFLOXACIN [Concomitant]
  8. BACTRIM (SULFAMETHAZOLE, TRIMETHORPRIM) [Concomitant]
  9. URSODEOXYCHOLIC ACID (URSODEOXYCHOLIC ACID) [Concomitant]
  10. LEKOVIT CA (COLECALCIFEROL, CALCIUM CARBONATE) [Concomitant]
  11. IPRATROPIUM BROMIDE [Concomitant]
  12. SERETIDE MITE (FLUTICASONE PROPIONATE, SALMETEROL XINAFOATE) [Concomitant]
  13. ENALAPRIL MALEATE [Concomitant]
  14. HYPROMELLOSE (HYPROMELLOSE) [Concomitant]
  15. FLOXAL EYEDROPS (BENZALKONIUM CHLORIDE, OFLOXACIN) [Concomitant]
  16. POTASSIUM IODIDE (POTASSIUM IODIDE) [Concomitant]
  17. INSULIN HUMAN (INSULIN HUMAN) [Concomitant]
  18. ACETYLCYSTEINE [Concomitant]
  19. TORSEMIDE [Concomitant]
  20. SODIUM CHLORIDE 0.9% [Concomitant]
  21. ZOLEDRONIC ACID (ZOLEDRONIC ACID) [Concomitant]

REACTIONS (3)
  - HALLUCINATION [None]
  - PARANOIA [None]
  - PSYCHOTIC DISORDER [None]
